FAERS Safety Report 6651891-5 (Version None)
Quarter: 2010Q1

REPORT INFORMATION
  Report Type: 
  Country: None (occurrence: None)
  Receive Date: 20100323
  Receipt Date: 20100308
  Transmission Date: 20100710
  Serious: Yes (Death, Hospitalization)
  Sender: FDA-Public Use
  Company Number: 2010000808

PATIENT
  Age: 52 Year
  Sex: Female

DRUGS (1)
  1. TARCEVA [Suspect]
     Indication: LUNG CANCER METASTATIC
     Dosage: 150 MG, QD, ORAL
     Route: 048
     Dates: start: 20100216, end: 20100227

REACTIONS (3)
  - INFECTION [None]
  - MULTI-ORGAN FAILURE [None]
  - PNEUMONIA [None]
